FAERS Safety Report 8369913-2 (Version None)
Quarter: 2012Q2

REPORT INFORMATION
  Report Type: 
  Country: None (occurrence: None)
  Receive Date: 20120518
  Receipt Date: 20120514
  Transmission Date: 20120825
  Serious: Yes (Hospitalization)
  Sender: FDA-Public Use
  Company Number: CN-ROXANE LABORATORIES, INC.-2012-RO-01235RO

PATIENT
  Age: 49 Year
  Sex: Male

DRUGS (3)
  1. PREDNISONE [Suspect]
     Indication: LIVER TRANSPLANT
     Dates: start: 20020101
  2. MYCOPHENOLATE MOFETIL [Suspect]
     Indication: LIVER TRANSPLANT
     Dates: start: 20020101
  3. TACROLIMUS [Suspect]
     Indication: LIVER TRANSPLANT
     Dates: start: 20020101, end: 20070101

REACTIONS (1)
  - KAPOSI'S SARCOMA [None]
